FAERS Safety Report 6502043-0 (Version None)
Quarter: 2009Q4

REPORT INFORMATION
  Report Type: 
  Country: None (occurrence: None)
  Receive Date: 20091214
  Receipt Date: 20091202
  Transmission Date: 20100525
  Serious: Yes (Hospitalization)
  Sender: FDA-Public Use
  Company Number: PAR_03246_2009

PATIENT
  Sex: Female

DRUGS (18)
  1. IBUPROFEN [Suspect]
     Indication: DRUG USE FOR UNKNOWN INDICATION
     Dosage: (DF ORAL)
     Route: 048
     Dates: start: 20090721, end: 20090701
  2. AERIUS /01398501/ (AERIUS - DESLORATADINE) (NOT SPECIFIED) [Suspect]
     Indication: DRUG USE FOR UNKNOWN INDICATION
     Dosage: (DF ORAL), (DF ORAL)
     Route: 048
     Dates: start: 20090721, end: 20090701
  3. AERIUS /01398501/ (AERIUS - DESLORATADINE) (NOT SPECIFIED) [Suspect]
     Indication: DRUG USE FOR UNKNOWN INDICATION
     Dosage: (DF ORAL), (DF ORAL)
     Route: 048
     Dates: start: 20090827
  4. BEROCCA C [Suspect]
     Indication: DRUG USE FOR UNKNOWN INDICATION
     Dosage: (DF ORAL)
     Route: 048
     Dates: start: 20090721, end: 20090701
  5. VITAMIN B1 AND B6          (VITAMINE B1 B6 BAYER - PYRIDOXINE/THIAMINE [Suspect]
     Indication: DRUG USE FOR UNKNOWN INDICATION
     Dosage: (2 DF QD ORAL)
     Route: 048
     Dates: start: 20090731
  6. RIFADIN [Suspect]
     Indication: TUBERCULOSIS
     Dosage: (660 MG QD ORAL)
     Route: 048
     Dates: start: 20090730
  7. IXPRIM (IXPRIM - PARACETAMOL/TRAMADOL HYDROCHLORIDE) (NOT SPECIFIED) [Suspect]
     Indication: DRUG USE FOR UNKNOWN INDICATION
     Dosage: (DF ORAL)
     Route: 048
     Dates: start: 20090730, end: 20090801
  8. ROCEPHIN [Suspect]
     Indication: DRUG USE FOR UNKNOWN INDICATION
     Dosage: (1 G QD INTRAVENOUS (NOT OTHERWISE SPECIFIED)
     Route: 042
     Dates: start: 20090728, end: 20090729
  9. PERFALGAN        (PERFALGAN - PARACETAMOL) (NOT SPECIFIED) [Suspect]
     Indication: DRUG USE FOR UNKNOWN INDICATION
     Dosage: (DF, 10 MG/ML INTRAVENOUS (NOT OTHERWISE SPECIFIED)
     Route: 042
     Dates: start: 20090728, end: 20090701
  10. TOPALGIC LP (TOPALGIC LP - TRAMADOL HYDROCHLORIDE) 50 MG (NOT SPECIFIE [Suspect]
     Indication: DRUG USE FOR UNKNOWN INDICATION
     Dosage: (DF ORAL)
     Route: 048
     Dates: start: 20090810, end: 20090825
  11. STROMECTOL [Suspect]
     Indication: DRUG USE FOR UNKNOWN INDICATION
     Dosage: (5 DF 1X ORAL)
     Route: 048
     Dates: start: 20090806, end: 20090806
  12. RIMIFON [Suspect]
     Indication: TUBERCULOSIS
     Dosage: (260 MG QD ORAL)
     Route: 048
     Dates: start: 20090730
  13. MYAMBUTOL / (MYAMBUTOL - ETHAMBUTOL DIHYDROCHLORIDE) (NOT SPECIFIED) [Suspect]
     Indication: TUBERCULOSIS
     Dosage: (1000 MG QD ORAL)
     Route: 048
     Dates: start: 20090730, end: 20090902
  14. PIRILENE         (PIRILENE - PYRAZINAMIDE) (NOT SPECIFIED) [Suspect]
     Indication: TUBERCULOSIS
     Dosage: (1300 MG QD ORAL)
     Route: 048
     Dates: start: 20090730
  15. ACUPAN [Suspect]
     Indication: DRUG USE FOR UNKNOWN INDICATION
     Dosage: (DF INTRAVENOUS (NOT OTHERWISE SPECIFIED))
     Route: 042
     Dates: start: 20090728, end: 20090701
  16. ZEFFIX [Concomitant]
  17. IDARAC [Concomitant]
  18. TRIPHASIL-21 [Concomitant]

REACTIONS (3)
  - PULMONARY TUBERCULOSIS [None]
  - SKIN EXFOLIATION [None]
  - TOXIC SKIN ERUPTION [None]
